FAERS Safety Report 5462911-8 (Version None)
Quarter: 2007Q3

REPORT INFORMATION
  Report Type: 
  Country: None (occurrence: None)
  Receive Date: 20070920
  Receipt Date: 20070913
  Transmission Date: 20080115
  Serious: Yes (Other)
  Sender: FDA-Public Use
  Company Number: US-JNJFOC-20070903154

PATIENT
  Sex: Female
  Weight: 125.19 kg

DRUGS (2)
  1. REMICADE [Suspect]
     Indication: RHEUMATOID ARTHRITIS
     Route: 042
  2. NEXAVAR [Concomitant]

REACTIONS (1)
  - LUNG NEOPLASM [None]
